FAERS Safety Report 4938553-7 (Version None)
Quarter: 2006Q1

REPORT INFORMATION
  Report Type: 
  Country: None (occurrence: None)
  Receive Date: 20060306
  Receipt Date: 20060220
  Transmission Date: 20060701
  Serious: Yes (Hospitalization)
  Sender: FDA-Public Use
  Company Number: US200602004107

PATIENT
  Age: 62 Year
  Sex: Male

DRUGS (2)
  1. HUMALOG PEN [Suspect]
     Indication: DIABETES MELLITUS
     Dosage: SUBCUTANEOUS
     Route: 058
     Dates: start: 20050401
  2. HUMALOG PEN (HUMALOG PEN) PEN, DISPOSABLE [Concomitant]

REACTIONS (1)
  - HEART TRANSPLANT REJECTION [None]
